FAERS Safety Report 15392971 (Version 1)
Quarter: 2018Q3

REPORT INFORMATION
  Report Type: Spontaneous
  Country: US (occurrence: US)
  Receive Date: 20180917
  Receipt Date: 20180917
  Transmission Date: 20181010
  Serious: No
  Sender: FDA-Public Use
  Company Number: US-ASTRAZENECA-2014SE60037

PATIENT
  Age: 62 Year
  Sex: Male
  Weight: 111.1 kg

DRUGS (8)
  1. METOPROLOL TARTRATE. [Suspect]
     Active Substance: METOPROLOL TARTRATE
     Indication: BLOOD PRESSURE MEASUREMENT
     Route: 048
  2. METFORMIN [Concomitant]
     Active Substance: METFORMIN HYDROCHLORIDE
     Indication: TYPE 2 DIABETES MELLITUS
  3. BYDUREON [Suspect]
     Active Substance: EXENATIDE
     Indication: TYPE 2 DIABETES MELLITUS
     Route: 058
  4. SIMVASTATIN. [Concomitant]
     Active Substance: SIMVASTATIN
     Indication: BLOOD CHOLESTEROL
     Route: 048
  5. BYDUREON [Suspect]
     Active Substance: EXENATIDE
     Indication: TYPE 2 DIABETES MELLITUS
     Route: 058
  6. VALSARTAN. [Concomitant]
     Active Substance: VALSARTAN
     Indication: BLOOD PRESSURE MEASUREMENT
  7. BYETTA [Suspect]
     Active Substance: EXENATIDE
     Indication: BLOOD PRESSURE MEASUREMENT
     Route: 058
  8. BYETTA [Suspect]
     Active Substance: EXENATIDE
     Indication: TYPE 2 DIABETES MELLITUS
     Route: 058

REACTIONS (12)
  - Feeling abnormal [Unknown]
  - Chills [Unknown]
  - Glycosylated haemoglobin increased [Unknown]
  - Visual impairment [Unknown]
  - Drug ineffective [Unknown]
  - Vision blurred [Unknown]
  - Drug dose omission [Not Recovered/Not Resolved]
  - Tremor [Unknown]
  - Product packaging issue [Unknown]
  - Pain in extremity [Unknown]
  - Wrong technique in product usage process [Unknown]
  - Weight decreased [Unknown]

NARRATIVE: CASE EVENT DATE: 20141207
